FAERS Safety Report 6707365-6 (Version None)
Quarter: 2010Q2

REPORT INFORMATION
  Report Type: 
  Country: None (occurrence: None)
  Receive Date: 20100503
  Receipt Date: 20090427
  Transmission Date: 20101027
  Serious: No
  Sender: FDA-Public Use
  Company Number: US-ASTRAZENECA-2009UW10534

PATIENT
  Age: 19 Month
  Sex: Female

DRUGS (1)
  1. NEXIUM [Suspect]
     Dosage: 20 MG
     Route: 048
     Dates: start: 20090423

REACTIONS (7)
  - ACCIDENTAL DRUG INTAKE BY CHILD [None]
  - DECREASED APPETITE [None]
  - DIARRHOEA [None]
  - MALAISE [None]
  - PYREXIA [None]
  - SLEEP DISORDER [None]
  - VOMITING [None]
